FAERS Safety Report 9973646 (Version 3)
Quarter: 2014Q2

REPORT INFORMATION
  Report Type: Spontaneous
  Country: JP (occurrence: JP)
  Receive Date: 20140306
  Receipt Date: 20140417
  Transmission Date: 20141212
  Serious: Yes (Hospitalization)
  Sender: FDA-Public Use
  Company Number: PHHY2014JP025089

PATIENT
  Age: 36 Year
  Sex: Female

DRUGS (4)
  1. APRESOLIN [Suspect]
     Indication: HYPERTENSION
     Route: 048
  2. METHYLDOPA [Suspect]
     Indication: HYPERTENSION
     Route: 048
  3. CEFAZOLIN SODIUM [Suspect]
     Dosage: UNK
     Dates: start: 200905
  4. INSULIN [Suspect]
     Indication: GESTATIONAL DIABETES

REACTIONS (8)
  - Gestational diabetes [Unknown]
  - Abdominal pain [Unknown]
  - Thrombotic microangiopathy [Unknown]
  - Blood pressure increased [Unknown]
  - Arthralgia [Not Recovered/Not Resolved]
  - C-reactive protein increased [Not Recovered/Not Resolved]
  - Decreased appetite [Not Recovered/Not Resolved]
  - Maternal exposure during pregnancy [Unknown]
